FAERS Safety Report 20064798 (Version 1)
Quarter: 2021Q4

REPORT INFORMATION
  Report Type: Spontaneous
  Country: US (occurrence: US)
  Receive Date: 20211112
  Receipt Date: 20211112
  Transmission Date: 20220303
  Serious: No
  Sender: FDA-Public Use
  Company Number: US-BEH-2021137877

PATIENT
  Age: 21 Year
  Sex: Male

DRUGS (3)
  1. HIZENTRA [Suspect]
     Active Substance: HUMAN IMMUNOGLOBULIN G
     Indication: Hypogammaglobulinaemia
     Dosage: 10 GRAM, QW
     Route: 058
     Dates: start: 20210602
  2. HIZENTRA [Suspect]
     Active Substance: HUMAN IMMUNOGLOBULIN G
     Dosage: 10 GRAM, TOT
     Route: 058
     Dates: start: 20211020, end: 20211020
  3. HIZENTRA [Suspect]
     Active Substance: HUMAN IMMUNOGLOBULIN G
     Dosage: 10 GRAM, TOT
     Route: 058
     Dates: start: 20211027, end: 20211027

REACTIONS (11)
  - Ill-defined disorder [Unknown]
  - Recalled product administered [Unknown]
  - Injection site pain [Unknown]
  - Injection site rash [Unknown]
  - Injection site irritation [Unknown]
  - Injection site pain [Unknown]
  - Injection site rash [Unknown]
  - Injection site irritation [Unknown]
  - Recalled product administered [Unknown]
  - Recalled product administered [Unknown]
  - Recalled product administered [Unknown]

NARRATIVE: CASE EVENT DATE: 20211001
